FAERS Safety Report 8394977-X (Version None)
Quarter: 2012Q2

REPORT INFORMATION
  Report Type: 
  Country: None (occurrence: None)
  Receive Date: 20120530
  Receipt Date: 20120307
  Transmission Date: 20120825
  Serious: No
  Sender: FDA-Public Use
  Company Number: US-GLAXOSMITHKLINE-A0969672A

PATIENT
  Age: 55 Year
  Sex: Female
  Weight: 89.8 kg

DRUGS (1)
  1. FLOLAN [Suspect]
     Indication: PULMONARY ARTERIAL HYPERTENSION
     Dosage: 15NGKM UNKNOWN
     Route: 042
     Dates: start: 20111202

REACTIONS (2)
  - RASH [None]
  - PRURITUS [None]
